FAERS Safety Report 6627166-7 (Version None)
Quarter: 2010Q1

REPORT INFORMATION
  Report Type: 
  Country: None (occurrence: None)
  Receive Date: 20100311
  Receipt Date: 20091130
  Transmission Date: 20100710
  Serious: No
  Sender: FDA-Public Use
  Company Number: A0816970A

PATIENT
  Age: 21 Year
  Sex: Male

DRUGS (1)
  1. NICORETTE [Suspect]
     Dates: start: 20091110, end: 20091110

REACTIONS (2)
  - DIZZINESS [None]
  - NAUSEA [None]
